FAERS Safety Report 10246104 (Version 1)
Quarter: 2014Q2

REPORT INFORMATION
  Report Type: Spontaneous
  Country: US (occurrence: None)
  Receive Date: 20140617
  Receipt Date: 20140617
  Transmission Date: 20141212
  Serious: Yes (Hospitalization)
  Sender: FDA-Public Use
  Company Number: HYP201405-000033

PATIENT
  Age: 11 Year
  Sex: Female

DRUGS (1)
  1. RAVICTI (GLYCEROL PHENYLBUTYRATE) ORAL LIQUID [Suspect]
     Indication: AMINO ACID METABOLISM DISORDER
     Dates: start: 201312

REACTIONS (1)
  - Pancreatitis [None]
